FAERS Safety Report 25588065 (Version 1)
Quarter: 2025Q3

REPORT INFORMATION
  Report Type: Spontaneous
  Country: EU (occurrence: EU)
  Receive Date: 20250722
  Receipt Date: 20250722
  Transmission Date: 20251021
  Serious: Yes (Other)
  Sender: TEVA
  Company Number: None

PATIENT
  Age: 67 Year
  Sex: Female

DRUGS (4)
  1. CIPROFLOXACIN [Suspect]
     Active Substance: CIPROFLOXACIN
     Indication: Product used for unknown indication
     Dosage: 500MG 2X/JR
     Route: 048
     Dates: start: 20230627, end: 2023
  2. SMECTA [Concomitant]
     Active Substance: MONTMORILLONITE
     Indication: Product used for unknown indication
     Dosage: 1 SACHET 3X/JR
     Route: 048
     Dates: start: 20230627, end: 2023
  3. MYCOSTER [Concomitant]
     Indication: Product used for unknown indication
     Dates: start: 20230627, end: 2023
  4. PRISTINAMYCIN [Concomitant]
     Active Substance: PRISTINAMYCIN
     Indication: Product used for unknown indication
     Dosage: 1G 3X/JR
     Route: 048
     Dates: start: 20230627, end: 2023

REACTIONS (4)
  - Dermatitis bullous [Recovered/Resolved]
  - Erythema [Recovered/Resolved]
  - Oedema peripheral [Recovered/Resolved]
  - Feeling hot [Recovered/Resolved]

NARRATIVE: CASE EVENT DATE: 20230628
